FAERS Safety Report 6876350-6 (Version None)
Quarter: 2010Q3

REPORT INFORMATION
  Report Type: 
  Country: None (occurrence: None)
  Receive Date: 20100727
  Receipt Date: 20070910
  Transmission Date: 20110219
  Serious: Yes (Hospitalization, Other)
  Sender: FDA-Public Use
  Company Number: US-PFIZER INC-2006118834

PATIENT
  Sex: Female
  Weight: 56.7 kg

DRUGS (15)
  1. CELEBREX [Suspect]
     Indication: BACK PAIN
     Dates: start: 20020101
  2. BEXTRA [Suspect]
     Indication: BACK PAIN
     Dates: start: 20021220
  3. VIOXX [Suspect]
     Indication: BACK PAIN
     Route: 048
     Dates: start: 20000708
  4. PREMARIN [Concomitant]
     Indication: ENDOCRINE DISORDER
     Dates: start: 19930101, end: 20030701
  5. NITROTAB [Concomitant]
     Indication: HYPERTENSION
     Dates: start: 20000201, end: 20030501
  6. LIPITOR [Concomitant]
     Indication: BLOOD CHOLESTEROL INCREASED
     Dates: start: 20000201, end: 20030901
  7. ATENOLOL [Concomitant]
     Indication: HYPERTENSION
     Dates: start: 20010401
  8. ATENOLOL [Concomitant]
     Indication: CARDIAC DISORDER
  9. ENALAPRIL MALEATE [Concomitant]
     Dates: start: 20010420, end: 20040201
  10. NORVASC [Concomitant]
     Indication: CARDIAC DISORDER
     Dates: start: 20020101
  11. HYDROCHLOROTHIAZIDE [Concomitant]
     Indication: HYPERTENSION
     Dates: start: 20020101, end: 20040701
  12. HYDROCHLOROTHIAZIDE [Concomitant]
     Indication: OEDEMA
  13. HYDROCHLOROTHIAZIDE [Concomitant]
     Indication: CARDIAC DISORDER
  14. VICODIN [Concomitant]
     Indication: PAIN
     Dates: start: 20020301, end: 20050901
  15. PROPACET 100 [Concomitant]
     Indication: PAIN
     Dates: start: 20020401, end: 20051001

REACTIONS (2)
  - DEEP VEIN THROMBOSIS [None]
  - PULMONARY EMBOLISM [None]
